FAERS Safety Report 4787203-1 (Version None)
Quarter: 2005Q4

REPORT INFORMATION
  Report Type: 
  Country: None (occurrence: None)
  Receive Date: 20051004
  Receipt Date: 20050817
  Transmission Date: 20060501
  Serious: Yes (Hospitalization)
  Sender: FDA-Public Use
  Company Number: DE-AMGEN-UK146814

PATIENT
  Sex: Female
  Weight: 57 kg

DRUGS (8)
  1. MIMPARA [Suspect]
     Indication: HYPERPARATHYROIDISM SECONDARY
     Route: 065
     Dates: start: 20050720, end: 20050725
  2. FUROSEMIDE [Concomitant]
     Route: 048
  3. PANTOZOL [Concomitant]
     Route: 065
  4. DREISAVIT [Concomitant]
     Route: 065
  5. DURAGESIC-100 [Concomitant]
     Route: 065
  6. CALCIUM CARBONATE [Concomitant]
     Route: 048
  7. TRAMADOL HYDROCHLORIDE W/ACETAMINOPHEN [Concomitant]
     Route: 048
  8. CALCITRIOL [Concomitant]
     Route: 065

REACTIONS (5)
  - ANASTOMOTIC ULCER HAEMORRHAGE [None]
  - BLOOD PRESSURE DECREASED [None]
  - HAEMATEMESIS [None]
  - SYNCOPE [None]
  - UPPER GASTROINTESTINAL HAEMORRHAGE [None]
